FAERS Safety Report 6219849-8 (Version None)
Quarter: 2009Q2

REPORT INFORMATION
  Report Type: 
  Country: None (occurrence: None)
  Receive Date: 20090605
  Receipt Date: 20090528
  Transmission Date: 20091009
  Serious: Yes (Other)
  Sender: FDA-Public Use
  Company Number: 270089

PATIENT
  Age: 60 Year
  Sex: Female

DRUGS (6)
  1. METHOTREXATE [Suspect]
     Indication: BREAST CANCER
     Dosage: PER CYCLE, 6 CYCLES,
  2. EPIRUBICIN [Suspect]
     Indication: METASTASES TO BONE
     Dosage: PER CYCLE,
  3. PACLITAXEL [Suspect]
     Indication: METASTASES TO BONE
     Dosage: PER CYCLE,
  4. FLUOROURACIL [Suspect]
     Indication: BREAST CANCER
     Dosage: PER CYCLE, 6 CYCLES,
  5. CYCLOPHOSPHAMIDE [Suspect]
     Indication: BREAST CANCER
     Dosage: PER CYCLE, 6 CYCLES,
  6. (THERAPEUTIC RADIOPHARMACEUTICALS) [Suspect]
     Indication: BREAST CANCER

REACTIONS (7)
  - ACUTE LYMPHOCYTIC LEUKAEMIA [None]
  - BIOPSY BONE MARROW ABNORMAL [None]
  - GENERAL PHYSICAL HEALTH DETERIORATION [None]
  - METASTASES TO BONE [None]
  - METASTASES TO BONE MARROW [None]
  - METASTASES TO LIVER [None]
  - REFUSAL OF TREATMENT BY PATIENT [None]
